FAERS Safety Report 8001541-0 (Version None)
Quarter: 2011Q4

REPORT INFORMATION
  Report Type: 
  Country: None (occurrence: None)
  Receive Date: 20111222
  Receipt Date: 20111219
  Transmission Date: 20120403
  Serious: Yes (Death)
  Sender: FDA-Public Use
  Company Number: US-PFIZER INC-2011309002

PATIENT
  Age: 29 Year
  Sex: Female

DRUGS (5)
  1. COCAINE [Suspect]
     Route: 048
  2. VENLAFAXINE HCL [Suspect]
     Route: 048
  3. GABAPENTIN [Suspect]
     Route: 048
  4. BUSPIRONE [Suspect]
     Route: 048
  5. HEROIN [Suspect]
     Route: 048

REACTIONS (1)
  - DEATH [None]
